FAERS Safety Report 20552290 (Version 2)
Quarter: 2022Q1

REPORT INFORMATION
  Report Type: Spontaneous
  Country: US (occurrence: US)
  Receive Date: 20220304
  Receipt Date: 20220304
  Transmission Date: 20220423
  Serious: Yes (Other)
  Sender: FDA-Public Use
  Company Number: US-CELGENE-USA-20220300244

PATIENT
  Sex: Male

DRUGS (3)
  1. REVLIMID [Suspect]
     Active Substance: LENALIDOMIDE
     Indication: Product used for unknown indication
     Route: 048
  2. IBRUTINIB [Suspect]
     Active Substance: IBRUTINIB
     Indication: Chronic lymphocytic leukaemia
     Dosage: 1260 MILLIGRAM
     Route: 048
     Dates: start: 20210224, end: 2021
  3. IBRUTINIB [Suspect]
     Active Substance: IBRUTINIB
     Dosage: 420 MILLIGRAM
     Route: 048

REACTIONS (10)
  - Prostate cancer [Unknown]
  - Trismus [Recovering/Resolving]
  - Tooth disorder [Recovering/Resolving]
  - Prostatic specific antigen increased [Not Recovered/Not Resolved]
  - Hair texture abnormal [Unknown]
  - Onychoclasis [Unknown]
  - Haemorrhage [Unknown]
  - COVID-19 [Unknown]
  - Muscle spasms [Not Recovered/Not Resolved]
  - Diarrhoea [Unknown]

NARRATIVE: CASE EVENT DATE: 20210101
